FAERS Safety Report 6726656-6 (Version None)
Quarter: 2010Q2

REPORT INFORMATION
  Report Type: 
  Country: None (occurrence: None)
  Receive Date: 20100514
  Receipt Date: 20100504
  Transmission Date: 20101027
  Serious: Yes (Other)
  Sender: FDA-Public Use
  Company Number: FR-ABBOTT-10P-056-0642588-00

PATIENT
  Age: 60 Year
  Sex: Female

DRUGS (3)
  1. LIPANTHYL [Suspect]
     Indication: HYPERCHOLESTEROLAEMIA
     Route: 048
     Dates: end: 20100416
  2. LIPANTHYL [Suspect]
     Route: 048
     Dates: start: 20100417, end: 20100417
  3. LIPANTHYL [Suspect]
     Route: 048
     Dates: end: 20100420

REACTIONS (2)
  - DRUG ADMINISTRATION ERROR [None]
  - PHOTOSENSITIVITY REACTION [None]
